FAERS Safety Report 9857052 (Version 1)
Quarter: 2014Q1

REPORT INFORMATION
  Report Type: Report from Study
  Country: CO (occurrence: CO)
  Receive Date: 20140130
  Receipt Date: 20140130
  Transmission Date: 20141002
  Serious: Yes (Death, Hospitalization)
  Sender: FDA-Public Use
  Company Number: CO-BRISTOL-MYERS SQUIBB COMPANY-20114179

PATIENT
  Age: 29 Year
  Sex: Male

DRUGS (1)
  1. SPRYCEL (PH+ALL) TABS 70 MG [Suspect]
     Indication: ACUTE LYMPHOCYTIC LEUKAEMIA
     Route: 048
     Dates: start: 20121204, end: 20130122

REACTIONS (2)
  - Death [Fatal]
  - Adverse event [Unknown]
